FAERS Safety Report 24056970 (Version 1)
Quarter: 2024Q3

REPORT INFORMATION
  Report Type: Spontaneous
  Country: US (occurrence: US)
  Receive Date: 20240706
  Receipt Date: 20240706
  Transmission Date: 20241017
  Serious: No
  Sender: THE ACME LABORATORIES
  Company Number: US-The ACME Laboratories Ltd-2158884

PATIENT

DRUGS (1)
  1. ZOLPIDEM TARTRATE [Suspect]
     Active Substance: ZOLPIDEM TARTRATE
     Indication: Product used for unknown indication
     Route: 065

REACTIONS (6)
  - Mood altered [Unknown]
  - Product substitution issue [Unknown]
  - Insomnia [Unknown]
  - Depression [Unknown]
  - Impaired driving ability [Unknown]
  - Drug ineffective [Unknown]
